FAERS Safety Report 25956509 (Version 1)
Quarter: 2025Q4

REPORT INFORMATION
  Report Type: Spontaneous
  Country: US (occurrence: None)
  Receive Date: 20251023
  Receipt Date: 20251023
  Transmission Date: 20260118
  Serious: Yes (Hospitalization, Other)
  Sender: FDA-CTU
  Company Number: None

PATIENT
  Age: 59 Year
  Sex: Male
  Weight: 81.9 kg

DRUGS (4)
  1. QUETIAPINE [Suspect]
     Active Substance: QUETIAPINE
     Indication: Depression
     Dosage: FREQUENCY : AT BEDTIME;?
     Route: 048
     Dates: start: 20250909, end: 20250918
  2. quetiapine 50 mg po QHS [Concomitant]
     Dates: start: 20250909, end: 20250918
  3. escitalopram 15 mg po Daily [Concomitant]
  4. polyethylene glycol 3350 17 grams Q24h PRN [Concomitant]

REACTIONS (9)
  - Fall [None]
  - Dizziness [None]
  - Balance disorder [None]
  - Asthenia [None]
  - Vital functions abnormal [None]
  - Orthostatic hypotension [None]
  - Osteomyelitis [None]
  - Dehydration [None]
  - Fatigue [None]

NARRATIVE: CASE EVENT DATE: 20250912
